FAERS Safety Report 7503319-0 (Version None)
Quarter: 2011Q2

REPORT INFORMATION
  Report Type: 
  Country: None (occurrence: None)
  Receive Date: 20110525
  Receipt Date: 20110512
  Transmission Date: 20111010
  Serious: Yes (Other)
  Sender: FDA-Public Use
  Company Number: PHHY2011DE41073

PATIENT
  Age: 65 Year
  Sex: Male

DRUGS (1)
  1. ZOMETA [Suspect]
     Dosage: 1 DF IN 4 WEEKS
     Route: 042
     Dates: start: 20010401, end: 20090921

REACTIONS (2)
  - OSTEONECROSIS OF JAW [None]
  - PERIODONTITIS [None]
